FAERS Safety Report 6581589-3 (Version None)
Quarter: 2010Q1

REPORT INFORMATION
  Report Type: 
  Country: None (occurrence: None)
  Receive Date: 20100211
  Receipt Date: 20100211
  Transmission Date: 20100710
  Serious: Yes (Other)
  Sender: FDA-Public Use
  Company Number: None

PATIENT
  Sex: Female
  Weight: 113.3993 kg

DRUGS (1)
  1. MIRENA [Suspect]
     Indication: CONTRACEPTION
     Dates: start: 20080401, end: 20100201

REACTIONS (3)
  - ABORTION SPONTANEOUS [None]
  - PREGNANCY [None]
  - PREGNANCY WITH CONTRACEPTIVE DEVICE [None]
